FAERS Safety Report 10380907 (Version 1)
Quarter: 2014Q1

REPORT INFORMATION
  Report Type: Spontaneous
  Country: US (occurrence: None)
  Receive Date: 20140306
  Receipt Date: 20140306
  Transmission Date: 20141002
  Serious: Yes (Hospitalization)
  Sender: FDA-Public Use
  Company Number: 163-21880-13014969

PATIENT
  Age: 87 Year
  Sex: Female

DRUGS (10)
  1. REVLIMID (LENALIDOMIDE) (25 MILLIGRAM, CAPSULES) [Suspect]
     Indication: PLASMA CELL MYELOMA
     Dosage: TEMPORARILY INTERRUPTED; 21 IN 21 D
     Route: 048
     Dates: start: 20120319
  2. AMITIZA (LUBIPROSTONE) [Concomitant]
  3. ASPIR-B1 (ACETYLSALICYLIC ACID) [Concomitant]
  4. BISOPROLOL FUMARATE [Concomitant]
  5. CALCIUM [Concomitant]
  6. CENTRUM [Concomitant]
  7. COUMADIN (WARFARIN SODIUM) [Concomitant]
  8. DEXAMETHASONE [Concomitant]
  9. ECHINACEA (ECHINACEA EXTRACT) [Concomitant]
  10. DOXYCYCLINE HYCLATE [Concomitant]

REACTIONS (1)
  - Pneumonia [None]
